FAERS Safety Report 8077062-6 (Version None)
Quarter: 2012Q1

REPORT INFORMATION
  Report Type: 
  Country: None (occurrence: None)
  Receive Date: 20120127
  Receipt Date: 20120119
  Transmission Date: 20120608
  Serious: Yes (Death, Hospitalization, Other)
  Sender: FDA-Public Use
  Company Number: PHHY2010CA04967

PATIENT
  Sex: Female

DRUGS (5)
  1. SANDOSTATIN LAR [Suspect]
     Dosage: 30 MG EVERY 3 WEEK
     Route: 030
  2. SANDOSTATIN LAR [Suspect]
     Dosage: 30 MG EVERY 4 WEEK
     Route: 030
  3. SANDOSTATIN LAR [Suspect]
     Indication: CARCINOID SYNDROME
     Dosage: 30 MG, EVERY 3 WEEKS
     Route: 030
     Dates: start: 20090526
  4. SANDOSTATIN LAR [Suspect]
     Dosage: 30 MG, QMO
     Route: 030
     Dates: end: 20111229
  5. SANDOSTATIN LAR [Suspect]
     Dosage: 30 MG, QMO
     Route: 030

REACTIONS (17)
  - INJECTION SITE SWELLING [None]
  - NEEDLE ISSUE [None]
  - ATRIAL FIBRILLATION [None]
  - ARTHRALGIA [None]
  - IMMUNOGLOBULINS INCREASED [None]
  - INJECTION SITE MASS [None]
  - WRONG TECHNIQUE IN DRUG USAGE PROCESS [None]
  - ALPHA 2 GLOBULIN DECREASED [None]
  - BLOOD PRESSURE SYSTOLIC INCREASED [None]
  - JOINT STIFFNESS [None]
  - INJECTION SITE WARMTH [None]
  - INJECTION SITE PAIN [None]
  - PAIN IN EXTREMITY [None]
  - FLATULENCE [None]
  - DEATH [None]
  - DIARRHOEA [None]
  - ELECTRIC SHOCK [None]
